FAERS Safety Report 7240862-6 (Version None)
Quarter: 2011Q1

REPORT INFORMATION
  Report Type: 
  Country: None (occurrence: None)
  Receive Date: 20110120
  Receipt Date: 20110120
  Transmission Date: 20110831
  Serious: Yes (Hospitalization)
  Sender: FDA-Public Use
  Company Number: None

PATIENT
  Sex: Female
  Weight: 72.5755 kg

DRUGS (1)
  1. CIPROFLAXACIN [Suspect]
     Indication: URINARY TRACT INFECTION
     Dosage: 1 BY MOUTH 2X DAY UP TO 6 TAB
     Route: 048
     Dates: start: 20101231, end: 20110102

REACTIONS (1)
  - PAIN IN EXTREMITY [None]
